FAERS Safety Report 4306921-2 (Version None)
Quarter: 2004Q1

REPORT INFORMATION
  Report Type: 
  Country: None (occurrence: None)
  Receive Date: 20040225
  Receipt Date: 20040204
  Transmission Date: 20041129
  Serious: Yes (Death, Hospitalization)
  Sender: FDA-Public Use
  Company Number: EWC030835818

PATIENT
  Age: 78 Year
  Sex: Female
  Weight: 74 kg

DRUGS (10)
  1. XIGRIS [Suspect]
     Indication: SEPSIS
     Dosage: 40 MG/DAY
     Dates: start: 20030724, end: 20030727
  2. HEPARIN CALCIUM [Concomitant]
  3. INSULIN RAPID (INSULIN HUMAN SEMISYNTHETIC) [Concomitant]
  4. AMIODARONE HCL [Concomitant]
  5. DOBUTAMINE [Concomitant]
  6. MIDAZOLAM HCL [Concomitant]
  7. AMPICILLIN [Concomitant]
  8. ROCEPHIN [Concomitant]
  9. DECADRON [Concomitant]
  10. DINTOINA (PHENYTOIN SODIUM) [Concomitant]

REACTIONS (2)
  - CEREBRAL HAEMORRHAGE [None]
  - CIRCULATORY COLLAPSE [None]
